FAERS Safety Report 5240634-8 (Version None)
Quarter: 2007Q1

REPORT INFORMATION
  Report Type: 
  Country: None (occurrence: None)
  Receive Date: 20070219
  Receipt Date: 20070207
  Transmission Date: 20070707
  Serious: Yes (Other)
  Sender: FDA-Public Use
  Company Number: US-MERCK-0702USA03020

PATIENT

DRUGS (1)
  1. ALDOMET [Suspect]
     Route: 065

REACTIONS (1)
  - ACUTE HEPATIC FAILURE [None]
